FAERS Safety Report 19733455 (Version 1)
Quarter: 2021Q3

REPORT INFORMATION
  Report Type: Spontaneous
  Country: US (occurrence: US)
  Receive Date: 20210823
  Receipt Date: 20210823
  Transmission Date: 20211014
  Serious: No
  Sender: FDA-Public Use
  Company Number: US-CIPLA LTD.-2021US04284

PATIENT

DRUGS (4)
  1. DICLOFENAC [Suspect]
     Active Substance: DICLOFENAC
     Dosage: LESSER THAN 4 G, TID
     Route: 061
  2. DICLOFENAC [Suspect]
     Active Substance: DICLOFENAC
     Dosage: LESSER THAN 4 G, TID (2 TUBES)
     Route: 061
  3. DICLOFENAC [Suspect]
     Active Substance: DICLOFENAC
     Dosage: LESSER THAN 4 G, TID
     Route: 061
  4. DICLOFENAC [Suspect]
     Active Substance: DICLOFENAC
     Indication: ARTHROPATHY
     Dosage: LESSER THAN 4 G, TID
     Route: 061

REACTIONS (5)
  - Intentional underdose [Unknown]
  - Dermal absorption impaired [Unknown]
  - Product residue present [Unknown]
  - Product physical consistency issue [Unknown]
  - Wrong technique in product usage process [Unknown]
